FAERS Safety Report 10310828 (Version 1)
Quarter: 2014Q3

REPORT INFORMATION
  Report Type: Spontaneous
  Country: US (occurrence: US)
  Receive Date: 20140717
  Receipt Date: 20140717
  Transmission Date: 20150326
  Serious: No
  Sender: FDA-Public Use
  Company Number: US-009507513-1407USA006513

PATIENT
  Sex: Male

DRUGS (3)
  1. PEGINTRON [Suspect]
     Active Substance: PEGINTERFERON ALFA-2B
     Indication: HEPATITIS C
     Dosage: 96 MICROGRAM WEEKLY
     Route: 058
     Dates: start: 201206, end: 20121017
  2. VICTRELIS [Suspect]
     Active Substance: BOCEPREVIR
     Indication: HEPATITIS C
     Dosage: 4(CAPSULES) TID
     Route: 048
     Dates: start: 201206, end: 20121017
  3. RIBAVIRIN. [Suspect]
     Active Substance: RIBAVIRIN
     Indication: HEPATITIS C
     Dosage: 1 CAPSULE  ORALLY(PO) IN THE MORNING(AM) AND 2 ORALLY(PO) IN THE EVENING(PM)
     Route: 048
     Dates: start: 201206, end: 20121017

REACTIONS (1)
  - Drug ineffective [Unknown]
